FAERS Safety Report 20324135 (Version 2)
Quarter: 2022Q1

REPORT INFORMATION
  Report Type: Spontaneous
  Country: US (occurrence: US)
  Receive Date: 20220111
  Receipt Date: 20220128
  Transmission Date: 20220424
  Serious: No
  Sender: FDA-Public Use
  Company Number: US-009507513-2201USA000973

PATIENT
  Age: 79 Year
  Sex: Female
  Weight: 58.6 kg

DRUGS (9)
  1. KEYTRUDA [Suspect]
     Active Substance: PEMBROLIZUMAB
     Indication: Neuroendocrine carcinoma of the skin
     Dosage: 200 MILLIGRAM, Q3W
     Route: 042
     Dates: start: 20200810
  2. HYDRALAZINE [Concomitant]
     Active Substance: HYDRALAZINE HYDROCHLORIDE
     Dosage: TOTAL DAILY DOSE: 10 MG, FOUR TIMES DAILY (QID)
  3. MEGACE [Concomitant]
     Active Substance: MEGESTROL ACETATE
     Dosage: TOTAL DAILY DOSE: 40 MG, TWICE DAILY (BID)
  4. HYDROCHLOROTHIAZIDE [Concomitant]
     Active Substance: HYDROCHLOROTHIAZIDE
     Dosage: TOTAL DAILY DOSE: 25 MILLIGRAM ONCE DAILY (ONCE)
  5. LEVOTHYROXINE [Concomitant]
     Active Substance: LEVOTHYROXINE
     Dosage: 75 MICROGRAM
  6. LOSARTAN [Concomitant]
     Active Substance: LOSARTAN
     Dosage: TOTAL DAILY DOSE: 100 MILLIGRAM, ONCE DAILY (ONCE)
  7. OMEPRAZOLE [Concomitant]
     Active Substance: OMEPRAZOLE
     Dosage: TOTAL DAILY DOSE: 40 MILLIGRAM, ONCE DAILY (ONCE)
  8. ZOFRAN [Concomitant]
     Active Substance: ONDANSETRON HYDROCHLORIDE
     Dosage: AS NEEDED (PRN)
  9. LOMOTIL [Concomitant]
     Active Substance: ATROPINE SULFATE\DIPHENOXYLATE HYDROCHLORIDE
     Dosage: TOTAL DAILY DOSE: FOUR TIMES A DAY AS NEEDED (PRN)

REACTIONS (1)
  - Vascular access complication [Unknown]

NARRATIVE: CASE EVENT DATE: 20220104
